FAERS Safety Report 18198243 (Version 1)
Quarter: 2020Q3

REPORT INFORMATION
  Report Type: Other
  Country: GB (occurrence: GB)
  Receive Date: 20200826
  Receipt Date: 20200826
  Transmission Date: 20201103
  Serious: No
  Sender: FDA-Public Use
  Company Number: GB-LUPIN PHARMACEUTICALS INC.-2019-07320

PATIENT
  Sex: Female

DRUGS (2)
  1. MEMANTINE. [Suspect]
     Active Substance: MEMANTINE
     Dosage: 20 MILLIGRAM
     Route: 048
     Dates: end: 20191014
  2. MEMANTINE. [Suspect]
     Active Substance: MEMANTINE
     Indication: MEMORY IMPAIRMENT
     Dosage: 5 MILLIGRAM
     Route: 048
     Dates: start: 20190807

REACTIONS (1)
  - Ecchymosis [Recovering/Resolving]

NARRATIVE: CASE EVENT DATE: 20191007
